FAERS Safety Report 5385435-5 (Version None)
Quarter: 2007Q3

REPORT INFORMATION
  Report Type: 
  Country: None (occurrence: None)
  Receive Date: 20070709
  Receipt Date: 20070628
  Transmission Date: 20080115
  Serious: Yes (Other)
  Sender: FDA-Public Use
  Company Number: GXKR2007IT05544

PATIENT
  Age: 53 Year
  Sex: Female

DRUGS (2)
  1. PERPHENAZINE [Suspect]
     Dosage: 4 MG, QD, UNK
  2. MIDODRINE HYDROCHLORIDE [Suspect]
     Indication: ORTHOSTATIC HYPOTENSION

REACTIONS (2)
  - DRUG INTERACTION POTENTIATION [None]
  - DYSTONIA [None]
